FAERS Safety Report 11220232 (Version 2)
Quarter: 2015Q3

REPORT INFORMATION
  Report Type: Report from Study
  Country: US (occurrence: US)
  Receive Date: 20150625
  Receipt Date: 20150831
  Transmission Date: 20151125
  Serious: Yes (Hospitalization, Other)
  Sender: FDA-Public Use
  Company Number: US-EXELIXIS-CABO-15005330

PATIENT
  Age: 75 Year
  Sex: Male

DRUGS (6)
  1. COMETRIQ [Suspect]
     Active Substance: CABOZANTINIB S-MALATE
     Dosage: 60 MG, QD
     Route: 048
     Dates: start: 201508, end: 20150824
  2. COMETRIQ [Suspect]
     Active Substance: CABOZANTINIB S-MALATE
     Indication: THYROID CANCER
     Dosage: 60 MG, QD
     Route: 048
     Dates: start: 201411, end: 201507
  3. LASIX [Concomitant]
     Active Substance: FUROSEMIDE
  4. CORTISOL [Concomitant]
     Active Substance: HYDROCORTISONE
  5. LOVENOX [Concomitant]
     Active Substance: ENOXAPARIN SODIUM
  6. ATARAX [Concomitant]
     Active Substance: HYDROXYZINE\HYDROXYZINE HYDROCHLORIDE

REACTIONS (5)
  - Dysphagia [Unknown]
  - Pneumonia [Recovering/Resolving]
  - Back injury [Unknown]
  - Adrenal insufficiency [Unknown]
  - Aspiration [Unknown]

NARRATIVE: CASE EVENT DATE: 201508
